FAERS Safety Report 16062694 (Version 1)
Quarter: 2019Q1

REPORT INFORMATION
  Report Type: Spontaneous
  Country: US (occurrence: US)
  Receive Date: 20190312
  Receipt Date: 20190312
  Transmission Date: 20190418
  Serious: No
  Sender: FDA-Public Use
  Company Number: US-NOVOPROD-640251

PATIENT
  Age: 67 Year
  Sex: Female

DRUGS (3)
  1. HUMALOG [Concomitant]
     Active Substance: INSULIN LISPRO
     Indication: TYPE 1 DIABETES MELLITUS
     Dosage: 12 U, TID
     Route: 058
     Dates: start: 2016
  2. HUMALOG [Concomitant]
     Active Substance: INSULIN LISPRO
     Dosage: 7 U, BID
     Route: 058
  3. XULTOPHY 100/3.6 [Suspect]
     Active Substance: INSULIN DEGLUDEC\LIRAGLUTIDE
     Indication: TYPE 1 DIABETES MELLITUS
     Dosage: 14 U, QD
     Route: 058
     Dates: start: 201810

REACTIONS (3)
  - Blood glucose decreased [Recovered/Resolved]
  - Product use in unapproved indication [Unknown]
  - Blood glucose increased [Recovered/Resolved]

NARRATIVE: CASE EVENT DATE: 2018
